FAERS Safety Report 10141568 (Version 3)
Quarter: 2014Q2

REPORT INFORMATION
  Report Type: Spontaneous
  Country: JP (occurrence: JP)
  Receive Date: 20140429
  Receipt Date: 20140520
  Transmission Date: 20141212
  Serious: Yes (Hospitalization)
  Sender: FDA-Public Use
  Company Number: JP-GLAXOSMITHKLINE-B0988449A

PATIENT
  Age: 70 Year
  Sex: Female

DRUGS (5)
  1. LAMICTAL [Suspect]
     Indication: BIPOLAR DISORDER
     Route: 048
     Dates: start: 20140124, end: 20140217
  2. ERIMIN [Concomitant]
     Route: 048
  3. MERISLON [Concomitant]
     Route: 048
  4. EPADEL [Concomitant]
     Route: 048
  5. CALBLOCK [Concomitant]
     Route: 048

REACTIONS (9)
  - Rash generalised [Recovered/Resolved]
  - Herpes zoster [Recovered/Resolved]
  - Erythema [Recovered/Resolved]
  - White blood cell count increased [Recovered/Resolved]
  - Bacterial infection [Recovered/Resolved]
  - Back pain [Recovered/Resolved]
  - Oedema [Recovered/Resolved]
  - Abdominal pain [Recovered/Resolved]
  - Blister [Recovered/Resolved]
